FAERS Safety Report 9667081 (Version 1)
Quarter: 2013Q4

REPORT INFORMATION
  Report Type: Spontaneous
  Country: US (occurrence: US)
  Receive Date: 20131104
  Receipt Date: 20131104
  Transmission Date: 20140711
  Serious: No
  Sender: FDA-Public Use
  Company Number: US-BIOGENIDEC-2013BI089732

PATIENT
  Sex: Female

DRUGS (13)
  1. TECFIDERA [Suspect]
     Indication: MULTIPLE SCLEROSIS
     Route: 048
     Dates: start: 20130606
  2. ACETONEL [Concomitant]
  3. AMBIEN [Concomitant]
  4. CALCIUM 500 [Concomitant]
  5. FLUOXETINE HCL [Concomitant]
  6. FOLIC ACID [Concomitant]
  7. LIPITOR [Concomitant]
  8. MULTIVITAMIN [Concomitant]
  9. PROVIGIL [Concomitant]
  10. PROZAC [Concomitant]
  11. SIMVASTATIN [Concomitant]
  12. VITAMIN B COMPLEX [Concomitant]
  13. VITAMIN D [Concomitant]

REACTIONS (1)
  - Impaired healing [Unknown]
